FAERS Safety Report 9190603 (Version 1)
Quarter: 2013Q1

REPORT INFORMATION
  Report Type: Spontaneous
  Country: GB (occurrence: None)
  Receive Date: 20130322
  Receipt Date: 20130322
  Transmission Date: 20140127
  Serious: Yes (Other)
  Sender: FDA-Public Use
  Company Number: 2013-05097

PATIENT
  Age: 59 Year
  Sex: Female

DRUGS (1)
  1. NAPROXEN [Suspect]
     Indication: INFLAMMATION
     Route: 048
     Dates: start: 20130215, end: 20130220

REACTIONS (2)
  - Dyspnoea [None]
  - Productive cough [None]
